FAERS Safety Report 7703077-0 (Version None)
Quarter: 2011Q3

REPORT INFORMATION
  Report Type: 
  Country: None (occurrence: None)
  Receive Date: 20110823
  Receipt Date: 20110810
  Transmission Date: 20111222
  Serious: Yes (Other)
  Sender: FDA-Public Use
  Company Number: CA-US-EMD SERONO, INC.-7049129

PATIENT
  Sex: Female

DRUGS (6)
  1. REBIF [Suspect]
     Dates: end: 20110621
  2. REBIF [Suspect]
     Indication: RELAPSING-REMITTING MULTIPLE SCLEROSIS
     Dosage: 44 MCG (20 PERCENT)
     Dates: start: 20110311
  3. REBIF [Suspect]
     Dates: start: 20110623
  4. VITAMIN B-12 [Concomitant]
  5. VITAMIN D [Concomitant]
  6. ADVIL LIQUI-GELS [Concomitant]

REACTIONS (5)
  - INJECTION SITE ERYTHEMA [None]
  - HEPATIC ENZYME INCREASED [None]
  - HYPOAESTHESIA [None]
  - FATIGUE [None]
  - OPTIC NERVE DISORDER [None]
